FAERS Safety Report 23399201 (Version 3)
Quarter: 2024Q2

REPORT INFORMATION
  Report Type: Spontaneous
  Country: FI (occurrence: FI)
  Receive Date: 20240113
  Receipt Date: 20240408
  Transmission Date: 20240716
  Serious: Yes (Hospitalization, Disabling, Other)
  Sender: FDA-Public Use
  Company Number: FI-ABBVIE-5585278

PATIENT
  Age: 60 Year
  Sex: Male

DRUGS (2)
  1. RINVOQ [Suspect]
     Active Substance: UPADACITINIB
     Indication: Dermatitis atopic
     Dosage: FORM STRENGTH: 15 MILLIGRAM
     Route: 048
     Dates: start: 20230907, end: 20240104
  2. Acetylsalicylic acid (Primaspan) [Concomitant]
     Indication: Ophthalmic artery occlusion
     Dates: start: 202311

REACTIONS (2)
  - Temporal artery stenosis [Recovered/Resolved with Sequelae]
  - Visual field defect [Recovered/Resolved with Sequelae]

NARRATIVE: CASE EVENT DATE: 20231101
